FAERS Safety Report 4845451-6 (Version None)
Quarter: 2005Q4

REPORT INFORMATION
  Report Type: 
  Country: None (occurrence: None)
  Receive Date: 20051128
  Receipt Date: 20051118
  Transmission Date: 20060501
  Serious: Yes (Hospitalization)
  Sender: FDA-Public Use
  Company Number: 6018634

PATIENT
  Age: 50 Year
  Sex: Male

DRUGS (3)
  1. FLECATAB (TABLET) (FLECAINIDE) [Suspect]
     Indication: ATRIAL FLUTTER
     Dosage: 100 MG (100 MG, 1 D) ORAL
     Route: 048
     Dates: start: 20040901, end: 20051019
  2. ATACAND (TABLET) [Concomitant]
  3. NORVASC [Concomitant]

REACTIONS (6)
  - ABDOMINAL PAIN [None]
  - CONVULSION [None]
  - DIVERTICULITIS [None]
  - RECTAL HAEMORRHAGE [None]
  - TONGUE BITING [None]
  - TREMOR [None]
